FAERS Safety Report 7864059-1 (Version None)
Quarter: 2011Q4

REPORT INFORMATION
  Report Type: 
  Country: None (occurrence: None)
  Receive Date: 20111028
  Receipt Date: 20111018
  Transmission Date: 20120403
  Serious: Yes (Death)
  Sender: FDA-Public Use
  Company Number: US-JNJFOC-20110911421

PATIENT
  Sex: Male
  Weight: 77.11 kg

DRUGS (5)
  1. REMICADE [Suspect]
     Indication: CROHN'S DISEASE
     Route: 042
     Dates: start: 19991209
  2. ACETAMINOPHEN [Concomitant]
     Indication: PREMEDICATION
  3. MESALAMINE [Concomitant]
     Indication: CROHN'S DISEASE
  4. MERCAPTOPURINE [Concomitant]
     Indication: CROHN'S DISEASE
  5. ANTIHISTAMINES [Concomitant]
     Indication: PREMEDICATION

REACTIONS (4)
  - HAEMOPTYSIS [None]
  - HEPATIC CANCER METASTATIC [None]
  - METASTASES TO LUNG [None]
  - METASTASES TO PANCREAS [None]
